FAERS Safety Report 9461784 (Version 1)
Quarter: 2013Q3

REPORT INFORMATION
  Report Type: Spontaneous
  Country: US (occurrence: US)
  Receive Date: 20130816
  Receipt Date: 20130816
  Transmission Date: 20140515
  Serious: Yes (Hospitalization)
  Sender: FDA-Public Use
  Company Number: US-B.I. PHARMACEUTICALS,INC./RIDGEFIELD-2013-BI-24118BP

PATIENT
  Sex: Female
  Weight: 75 kg

DRUGS (3)
  1. COMBIVENT [Suspect]
     Indication: CHRONIC OBSTRUCTIVE PULMONARY DISEASE
     Dosage: STRENGTH: 18 MCG / 103 MCG; DAILY DOSE: 72 MCG/412 MCG
     Route: 055
     Dates: start: 2008, end: 20130807
  2. PRED FORTE [Concomitant]
     Indication: EYE DISORDER
  3. ASMANEX [Concomitant]
     Indication: ASTHMA
     Dosage: FORMULATION: (INHALATION SPRAY)
     Route: 055

REACTIONS (4)
  - Heart rate irregular [Recovered/Resolved]
  - Visual impairment [Not Recovered/Not Resolved]
  - Heart rate irregular [Recovered/Resolved]
  - Blindness unilateral [Recovered/Resolved]
